FAERS Safety Report 10810121 (Version 1)
Quarter: 2015Q1

REPORT INFORMATION
  Report Type: Report from Study
  Country: US (occurrence: US)
  Receive Date: 20150217
  Receipt Date: 20150217
  Transmission Date: 20150721
  Serious: No
  Sender: FDA-Public Use
  Company Number: US-ABBVIE-14K-163-1231814-00

PATIENT
  Sex: Female

DRUGS (7)
  1. ZIMA [Concomitant]
     Indication: PRODUCT USED FOR UNKNOWN INDICATION
  2. METHOTREXATE [Concomitant]
     Active Substance: METHOTREXATE
     Indication: PRODUCT USED FOR UNKNOWN INDICATION
  3. FOLIC ACID. [Concomitant]
     Active Substance: FOLIC ACID
     Indication: PRODUCT USED FOR UNKNOWN INDICATION
  4. HUMIRA [Suspect]
     Active Substance: ADALIMUMAB
     Dates: start: 20140407, end: 20140407
  5. HUMIRA [Suspect]
     Active Substance: ADALIMUMAB
     Dates: start: 20140421
  6. HUMIRA [Suspect]
     Active Substance: ADALIMUMAB
     Indication: RHEUMATOID ARTHRITIS
     Dates: start: 20140321, end: 20140321
  7. UNKNOWN BLOOD PRESSURE MEDICATION [Suspect]
     Active Substance: UNSPECIFIED INGREDIENT
     Indication: HYPERTENSION
     Dates: start: 2013

REACTIONS (4)
  - Cyst [Unknown]
  - Drug ineffective [Unknown]
  - Pruritus generalised [Not Recovered/Not Resolved]
  - Inappropriate schedule of drug administration [Unknown]
